FAERS Safety Report 13480693 (Version 2)
Quarter: 2017Q2

REPORT INFORMATION
  Report Type: Report from Study
  Country: US (occurrence: US)
  Receive Date: 20170425
  Receipt Date: 20170502
  Transmission Date: 20170830
  Serious: Yes (Death)
  Sender: FDA-Public Use
  Company Number: US-ACTELION-A-NJ2016-135261

PATIENT
  Age: 79 Year
  Sex: Male

DRUGS (9)
  1. ATIVAN [Concomitant]
     Active Substance: LORAZEPAM
     Dosage: 0.5/1 ML,  Q4HRS, PRN
  2. WARFARIN [Concomitant]
     Active Substance: WARFARIN
  3. REQUIP [Concomitant]
     Active Substance: ROPINIROLE HYDROCHLORIDE
     Dosage: 0.5 MG, (2 PILLS) BID
  4. METHADONE [Concomitant]
     Active Substance: METHADONE HYDROCHLORIDE
     Dosage: 10 MG, U(1-1/2 PILLS) BID
  5. OPSUMIT [Suspect]
     Active Substance: MACITENTAN
     Indication: PULMONARY HYPERTENSION
     Dosage: 10 MG, OD
     Route: 048
     Dates: start: 20160328
  6. OXYCODONE [Concomitant]
     Active Substance: OXYCODONE
     Dosage: 20 MG, Q4HRS, PRN
  7. TIKOSYN [Concomitant]
     Active Substance: DOFETILIDE
     Dosage: 260 MCG, BID
  8. DILTIAZEM. [Concomitant]
     Active Substance: DILTIAZEM
     Dosage: 180 MG, UNK
  9. PROTONIX [Concomitant]
     Active Substance: PANTOPRAZOLE SODIUM
     Dosage: 40 MG, BID

REACTIONS (8)
  - Chronic obstructive pulmonary disease [Fatal]
  - Feeling abnormal [Unknown]
  - Dyspnoea [Unknown]
  - Oxygen consumption increased [Unknown]
  - Therapy non-responder [Unknown]
  - Panic attack [Unknown]
  - Anxiety [Unknown]
  - Fatigue [Unknown]
